FAERS Safety Report 7561382-5 (Version None)
Quarter: 2011Q2

REPORT INFORMATION
  Report Type: 
  Country: None (occurrence: None)
  Receive Date: 20110621
  Receipt Date: 20100714
  Transmission Date: 20111010
  Serious: No
  Sender: FDA-Public Use
  Company Number: US-ASTRAZENECA-2010SE32896

PATIENT
  Age: 89 Year
  Sex: Male

DRUGS (1)
  1. PULMICORT [Suspect]
     Dosage: 0.5, BID
     Route: 055

REACTIONS (2)
  - DRUG INEFFECTIVE [None]
  - ASTHMA [None]
